FAERS Safety Report 15604497 (Version 1)
Quarter: 2018Q4

REPORT INFORMATION
  Report Type: Spontaneous
  Country: US (occurrence: US)
  Receive Date: 20181110
  Receipt Date: 20181110
  Transmission Date: 20190205
  Serious: Yes (Death, Other)
  Sender: FDA-Public Use
  Company Number: PHHY2018US149999

PATIENT
  Age: 67 Year
  Sex: Male

DRUGS (1)
  1. DIGOXIN. [Suspect]
     Active Substance: DIGOXIN
     Indication: AMYLOIDOSIS
     Route: 065

REACTIONS (5)
  - Sinus bradycardia [Fatal]
  - Cardiac arrest [Fatal]
  - Product use in unapproved indication [Unknown]
  - Respiratory arrest [Fatal]
  - Cardiac tamponade [Fatal]
